FAERS Safety Report 4458228-0 (Version None)
Quarter: 2004Q3

REPORT INFORMATION
  Report Type: 
  Country: None (occurrence: None)
  Receive Date: 20040922
  Receipt Date: 20040915
  Transmission Date: 20050211
  Serious: Yes (Hospitalization)
  Sender: FDA-Public Use
  Company Number: 2004233938FI

PATIENT
  Age: 84 Year
  Sex: Female

DRUGS (1)
  1. SULFASALAZINE [Suspect]
     Indication: DIARRHOEA
     Dosage: 500 MG, TID, ORAL
     Route: 048
     Dates: start: 20040701, end: 20040820

REACTIONS (7)
  - C-REACTIVE PROTEIN INCREASED [None]
  - DIARRHOEA [None]
  - FATIGUE [None]
  - LEUKOPENIA [None]
  - LYMPHOCYTOSIS [None]
  - NEUTROPENIA [None]
  - PYREXIA [None]
